FAERS Safety Report 13529057 (Version 1)
Quarter: 2017Q2

REPORT INFORMATION
  Report Type: Not Available
  Country: JP (occurrence: JP)
  Receive Date: 20170509
  Receipt Date: 20170509
  Transmission Date: 20170830
  Serious: Yes (Other)
  Sender: FDA-Public Use
  Company Number: JP-ANIPHARMA-2017-JP-000024

PATIENT
  Age: 46 Year
  Sex: Female

DRUGS (1)
  1. RISPERIDONE (NON-SPECIFIC) [Suspect]
     Active Substance: RISPERIDONE
     Dosage: 4 MG
     Route: 065

REACTIONS (1)
  - Dopamine dysregulation syndrome [Unknown]
